FAERS Safety Report 21423937 (Version 3)
Quarter: 2022Q4

REPORT INFORMATION
  Report Type: Spontaneous
  Country: AU (occurrence: None)
  Receive Date: 20221007
  Receipt Date: 20221116
  Transmission Date: 20230113
  Serious: Yes (Other)
  Sender: FDA-Public Use
  Company Number: 2022A302160

PATIENT
  Sex: Male

DRUGS (1)
  1. SYMBICORT [Suspect]
     Active Substance: BUDESONIDE\FORMOTEROL FUMARATE DIHYDRATE
     Dosage: 200/6 UG, 2 DOSES TWICE DAILY
     Route: 055
     Dates: start: 20220819

REACTIONS (4)
  - Asthma [Unknown]
  - Device use issue [Unknown]
  - Drug ineffective [Unknown]
  - Device delivery system issue [Unknown]
